FAERS Safety Report 24899760 (Version 2)
Quarter: 2025Q1

REPORT INFORMATION
  Report Type: Report from Study
  Country: US (occurrence: US)
  Receive Date: 20250129
  Receipt Date: 20250210
  Transmission Date: 20250409
  Serious: Yes (Hospitalization)
  Sender: EISAI
  Company Number: US-Eisai-EC-2025-182825

PATIENT
  Age: 52 Year
  Sex: Male

DRUGS (5)
  1. LENVIMA [Suspect]
     Active Substance: LENVATINIB
     Indication: Renal cancer
     Dates: start: 20250109, end: 20250113
  2. CARVEDILOL [Concomitant]
     Active Substance: CARVEDILOL
  3. LEVOTHYROXIN POW [Concomitant]
  4. VITAMINS [Concomitant]
     Active Substance: VITAMINS
  5. VALACYCLOVIR  POW [Concomitant]

REACTIONS (4)
  - Tumour rupture [Unknown]
  - Tumour haemorrhage [Unknown]
  - Headache [Unknown]
  - Hypertension [Unknown]

NARRATIVE: CASE EVENT DATE: 20250110
